FAERS Safety Report 23064433 (Version 1)
Quarter: 2023Q4

REPORT INFORMATION
  Report Type: Spontaneous
  Country: US (occurrence: None)
  Receive Date: 20231013
  Receipt Date: 20231013
  Transmission Date: 20240109
  Serious: Yes (Hospitalization)
  Sender: FDA-Public Use
  Company Number: None

PATIENT
  Age: 78 Year
  Sex: Male
  Weight: 154 kg

DRUGS (3)
  1. EMPAGLIFLOZIN [Suspect]
     Active Substance: EMPAGLIFLOZIN
     Dates: start: 20220803, end: 20220805
  2. METFORMIN HYDROCHLORIDE [Suspect]
     Active Substance: METFORMIN HYDROCHLORIDE
  3. LEVEMIR [Suspect]
     Active Substance: INSULIN DETEMIR

REACTIONS (9)
  - Acute kidney injury [None]
  - Treatment noncompliance [None]
  - Diarrhoea [None]
  - Abdominal pain [None]
  - Nausea [None]
  - Hypoglycaemia [None]
  - Tachycardia [None]
  - Hypotension [None]
  - Diabetic ketoacidosis [None]

NARRATIVE: CASE EVENT DATE: 20220805
